FAERS Safety Report 17296576 (Version 3)
Quarter: 2020Q1

REPORT INFORMATION
  Report Type: Report from Study
  Country: None (occurrence: AU)
  Receive Date: 20200122
  Receipt Date: 20200330
  Transmission Date: 20200409
  Serious: Yes (Hospitalization, Other)
  Sender: FDA-Public Use
  Company Number: AU-ABBVIE-20K-008-3242161-00

PATIENT
  Age: 29 Year
  Sex: Female

DRUGS (3)
  1. HUMIRA [Suspect]
     Active Substance: ADALIMUMAB
     Indication: CROHN^S DISEASE
     Route: 058
     Dates: start: 20190510
  2. HUMIRA [Suspect]
     Active Substance: ADALIMUMAB
     Indication: COLITIS
     Route: 058
     Dates: start: 202003
  3. MERCAPTOPURINE. [Concomitant]
     Active Substance: MERCAPTOPURINE
     Indication: PRODUCT USED FOR UNKNOWN INDICATION

REACTIONS (11)
  - Intestinal prolapse [Recovered/Resolved]
  - Inflammation [Recovered/Resolved]
  - Colitis [Recovered/Resolved]
  - Abdominal wall wound [Recovered/Resolved]
  - Cervix haemorrhage uterine [Recovered/Resolved]
  - Endometrial ablation [Recovered/Resolved]
  - Abdominal infection [Recovered/Resolved]
  - Crohn^s disease [Recovered/Resolved]
  - Uterine cervical laceration [Recovered/Resolved]
  - Purulent discharge [Recovered/Resolved]
  - Procedural complication [Recovered/Resolved]

NARRATIVE: CASE EVENT DATE: 20200116
